FAERS Safety Report 25671591 (Version 1)
Quarter: 2025Q3

REPORT INFORMATION
  Report Type: Spontaneous
  Country: EU (occurrence: EU)
  Receive Date: 20250812
  Receipt Date: 20250812
  Transmission Date: 20251020
  Serious: Yes (Other)
  Sender: AMGEN
  Company Number: EU-AMGEN-SVNSP2025156461

PATIENT
  Age: 72 Year
  Sex: Male

DRUGS (3)
  1. XGEVA [Suspect]
     Active Substance: DENOSUMAB
     Indication: Metastases to bone
     Dosage: 120 MILLIGRAM, QMO
     Route: 065
     Dates: start: 2021
  2. NIVOLUMAB [Suspect]
     Active Substance: NIVOLUMAB
     Indication: Metastases to bone
     Route: 065
     Dates: start: 2021, end: 202105
  3. NELVUTAMIG [Suspect]
     Active Substance: NELVUTAMIG
     Indication: Metastases to bone
     Route: 065
     Dates: start: 2021

REACTIONS (5)
  - Metastases to lymph nodes [Unknown]
  - Colitis [Unknown]
  - Polyarthritis [Unknown]
  - Metastases to bone [Unknown]
  - Vitiligo [Unknown]

NARRATIVE: CASE EVENT DATE: 20221201
